FAERS Safety Report 4925551-2 (Version None)
Quarter: 2006Q1

REPORT INFORMATION
  Report Type: 
  Country: None (occurrence: None)
  Receive Date: 20060228
  Receipt Date: 20040108
  Transmission Date: 20060701
  Serious: No
  Sender: FDA-Public Use
  Company Number: US-GLAXOSMITHKLINE-A0491991A

PATIENT
  Age: 44 Year
  Sex: Female

DRUGS (2)
  1. LAMICTAL [Suspect]
     Dosage: 100MG TWICE PER DAY
     Route: 048
     Dates: start: 20030601, end: 20040104
  2. CARBATROL [Concomitant]

REACTIONS (9)
  - ARTHRALGIA [None]
  - BURNING SENSATION [None]
  - CONSTIPATION [None]
  - DERMATITIS ACNEIFORM [None]
  - HEADACHE [None]
  - MENSTRUAL DISORDER [None]
  - OEDEMA PERIPHERAL [None]
  - PHARYNGOLARYNGEAL PAIN [None]
  - RHINORRHOEA [None]
